FAERS Safety Report 8576226-2 (Version None)
Quarter: 2012Q3

REPORT INFORMATION
  Report Type: 
  Country: None (occurrence: None)
  Receive Date: 20120807
  Receipt Date: 20120731
  Transmission Date: 20120928
  Serious: Yes (Hospitalization)
  Sender: FDA-Public Use
  Company Number: FR-PFIZER INC-2012184957

PATIENT
  Age: 59 Year
  Sex: Male

DRUGS (7)
  1. TACROLIMUS [Interacting]
     Indication: PROPHYLAXIS AGAINST TRANSPLANT REJECTION
     Dosage: 3 MG, DAILY
     Route: 048
     Dates: start: 20060101
  2. TAZOBACTAM [Concomitant]
     Indication: PLEUROPERICARDITIS
     Dosage: UNK
     Dates: start: 20111130
  3. FLUCONAZOLE [Suspect]
     Indication: PLEUROPERICARDITIS
     Dosage: UNK
     Dates: start: 20111130
  4. ESCITALOPRAM [Concomitant]
     Indication: DEPRESSION
     Route: 048
  5. CELLCEPT [Concomitant]
     Indication: PROPHYLAXIS AGAINST TRANSPLANT REJECTION
     Dosage: 500 MG, 2X/DAY
     Route: 048
     Dates: start: 20060101
  6. BACTRIM [Concomitant]
     Indication: PLEUROPERICARDITIS
     Dosage: UNK
     Dates: start: 20111130
  7. DELURSAN [Concomitant]
     Indication: HEPATITIS CHOLESTATIC
     Dosage: 250 MG, 2X/DAY
     Route: 048

REACTIONS (2)
  - CONFUSIONAL STATE [None]
  - DRUG INTERACTION [None]
